FAERS Safety Report 19214338 (Version 1)
Quarter: 2021Q2

REPORT INFORMATION
  Report Type: Report from Study
  Country: US (occurrence: US)
  Receive Date: 20210504
  Receipt Date: 20210504
  Transmission Date: 20210717
  Serious: No
  Sender: FDA-Public Use
  Company Number: NVSC2021US100705

PATIENT
  Sex: Female

DRUGS (1)
  1. AFINITOR [Suspect]
     Active Substance: EVEROLIMUS
     Indication: BLOOD GLUCOSE INCREASED
     Dosage: 7.5 MG, QD
     Route: 048

REACTIONS (1)
  - Blood glucose increased [Unknown]
